FAERS Safety Report 8746886 (Version 2)
Quarter: 2012Q4

REPORT INFORMATION
  Report Type: Spontaneous
  Country: TR (occurrence: None)
  Receive Date: 20120807
  Receipt Date: 20120814
  Transmission Date: 20130627
  Serious: Yes (Other)
  Sender: FDA-Public Use
  Company Number: 2012RR-58556

PATIENT
  Age: 31 Year
  Sex: Female

DRUGS (2)
  1. AMOXICILLIN AND CLAVULANATE POTASSIUM [Suspect]
     Indication: PRODUCT USED FOR UNKNOWN INDICATION
  2. AMOXICILLIN AND CLAVULANATE POTASSIUM [Suspect]
     Indication: SINUSITIS

REACTIONS (7)
  - Enterocolitis haemorrhagic [None]
  - Klebsiella infection [None]
  - Clostridial infection [None]
  - Diarrhoea haemorrhagic [None]
  - Colitis ulcerative [None]
  - Inflammatory bowel disease [None]
  - Clostridium difficile colitis [None]
